FAERS Safety Report 16790989 (Version 1)
Quarter: 2019Q3

REPORT INFORMATION
  Report Type: Spontaneous
  Country: US (occurrence: US)
  Receive Date: 20190910
  Receipt Date: 20190910
  Transmission Date: 20191005
  Serious: Yes (Death, Hospitalization)
  Sender: FDA-Public Use
  Company Number: US-TEVA-2019-US-1105411

PATIENT
  Age: 4 Year
  Sex: Male
  Weight: 15.3 kg

DRUGS (10)
  1. CEFTRIAXONE. [Concomitant]
     Active Substance: CEFTRIAXONE
     Route: 065
  2. PANTOPRAZOLE [Concomitant]
     Active Substance: PANTOPRAZOLE
     Route: 042
  3. FENTANYL. [Concomitant]
     Active Substance: FENTANYL
     Route: 065
  4. DEXTROSE. [Suspect]
     Active Substance: DEXTROSE
     Indication: ARRHYTHMIA
     Route: 065
  5. FAT EMULSION NOS [Suspect]
     Active Substance: EGG PHOSPHOLIPIDS\SAFFLOWER OIL\SOYBEAN OIL
     Indication: ARRHYTHMIA
     Dosage: 1.5 ML/KG
     Route: 040
  6. AMIODARONE [Suspect]
     Active Substance: AMIODARONE
     Indication: ARRHYTHMIA
     Route: 065
  7. BICARBONATE [Suspect]
     Active Substance: SODIUM BICARBONATE
     Indication: ARRHYTHMIA
     Route: 065
  8. ROPIVACAINE. [Interacting]
     Active Substance: ROPIVACAINE HYDROCHLORIDE
     Indication: LOCAL ANAESTHESIA
     Dosage: 6.5 MCG/KG/MIN VIA AN ON-Q PUMP
     Route: 058
  9. INSULIN [Suspect]
     Active Substance: INSULIN NOS
     Indication: HYPERKALAEMIA
     Route: 065
  10. PROPOFOL. [Suspect]
     Active Substance: PROPOFOL
     Indication: LOCAL ANAESTHESIA
     Route: 065

REACTIONS (4)
  - Drug interaction [Fatal]
  - Local anaesthetic systemic toxicity [Fatal]
  - Drug ineffective [Unknown]
  - Arrhythmia [Fatal]
